FAERS Safety Report 9835577 (Version 2)
Quarter: 2014Q3

REPORT INFORMATION
  Report Type: Spontaneous
  Country: US (occurrence: US)
  Receive Date: 20140122
  Receipt Date: 20140722
  Transmission Date: 20150326
  Serious: Yes (Hospitalization, Other)
  Sender: FDA-Public Use
  Company Number: US-009507513-1401USA009912

PATIENT
  Sex: Female

DRUGS (1)
  1. NUVARING [Suspect]
     Active Substance: ETHINYL ESTRADIOL\ETONOGESTREL
     Indication: CONTRACEPTION
     Dosage: UNK
     Route: 067
     Dates: start: 201202, end: 201204

REACTIONS (8)
  - Cerebral venous thrombosis [Unknown]
  - Cerebral ischaemia [Unknown]
  - Jugular vein thrombosis [Unknown]
  - Headache [Recovered/Resolved]
  - Generalised tonic-clonic seizure [Unknown]
  - Tongue biting [Unknown]
  - Hypokalaemia [Unknown]
  - Cerebral infarction [Unknown]

NARRATIVE: CASE EVENT DATE: 201204
